FAERS Safety Report 6202256-1 (Version None)
Quarter: 2009Q2

REPORT INFORMATION
  Report Type: 
  Country: None (occurrence: None)
  Receive Date: 20090526
  Receipt Date: 20090513
  Transmission Date: 20091009
  Serious: Yes (Death, Congenital Anomaly)
  Sender: FDA-Public Use
  Company Number: ES-AVENTIS-200915171GDDC

PATIENT

DRUGS (1)
  1. LANTUS [Suspect]
     Indication: DIABETIC RELATIVE
     Route: 064

REACTIONS (2)
  - DRUG EXPOSURE DURING PREGNANCY [None]
  - TRACHEAL DISORDER [None]
